FAERS Safety Report 19581309 (Version 1)
Quarter: 2021Q3

REPORT INFORMATION
  Report Type: Spontaneous
  Country: NL (occurrence: NL)
  Receive Date: 20210720
  Receipt Date: 20210720
  Transmission Date: 20211014
  Serious: Yes (Other)
  Sender: FDA-Public Use
  Company Number: NL-TEVA-2021-NL-1933016

PATIENT
  Age: 60 Year
  Sex: Female
  Weight: 85 kg

DRUGS (5)
  1. LISINOPRIL TABLET 20MG / BRAND NAME NOT SPECIFIED [Suspect]
     Active Substance: LISINOPRIL
     Indication: HYPERTENSION
     Dosage: BEEN BACK TO 10MG FOR 3 DAYS NOW; UNIT DOSE: 10MG; THERAPY END DATE: ASKU
     Dates: start: 202106
  2. PROGESTERON CAPSULE 100MG / UTROGESTAN CAPSULE 100MG [Concomitant]
     Dosage: THERAPY START AND END DATE: ASKU
  3. IMOVANE [Concomitant]
     Active Substance: ZOPICLONE
     Dosage: 3.5 MG; THERAPY START AND END DATE: ASKU
  4. LISINOPRIL TABLET 20MG / BRAND NAME NOT SPECIFIED [Suspect]
     Active Substance: LISINOPRIL
     Dosage: 1X DAILY 1X; THERAPY END DATE: ASKU;  UNIT DOSE: 20MG
     Dates: start: 20210414
  5. ESTRADIOL GEL 0,6MG/G / OESTROGEL GEL TRANSDERM 0,6MG/G (0,75MG/DO) IN [Concomitant]
     Dosage: 0,6 MG/G (MILLIGRAM PER GRAM); THERAPY START AND END DATE: ASKU

REACTIONS (9)
  - Nausea [Recovering/Resolving]
  - Dizziness [Recovering/Resolving]
  - Affect lability [Recovering/Resolving]
  - Fatigue [Not Recovered/Not Resolved]
  - Myalgia [Not Recovered/Not Resolved]
  - Chest discomfort [Recovering/Resolving]
  - Headache [Recovering/Resolving]
  - Suicidal ideation [Recovering/Resolving]
  - Arthralgia [Not Recovered/Not Resolved]

NARRATIVE: CASE EVENT DATE: 20210506
